FAERS Safety Report 24338812 (Version 1)
Quarter: 2024Q3

REPORT INFORMATION
  Report Type: Report from Study
  Country: IN (occurrence: IN)
  Receive Date: 20240919
  Receipt Date: 20240919
  Transmission Date: 20241017
  Serious: Yes (Other)
  Sender: ROCHE
  Company Number: IN-ROCHE-10000080702

PATIENT
  Age: 64 Year
  Sex: Female

DRUGS (1)
  1. PERJETA [Suspect]
     Active Substance: PERTUZUMAB
     Indication: Breast cancer
     Route: 042
     Dates: start: 20240417

REACTIONS (5)
  - Modified radical mastectomy [Unknown]
  - Breast conserving surgery [Unknown]
  - Nausea [Unknown]
  - Frequent bowel movements [Unknown]
  - Fatigue [Unknown]

NARRATIVE: CASE EVENT DATE: 20240720
